FAERS Safety Report 7663677-3 (Version None)
Quarter: 2011Q3

REPORT INFORMATION
  Report Type: 
  Country: None (occurrence: None)
  Receive Date: 20110805
  Receipt Date: 20100902
  Transmission Date: 20111222
  Serious: No
  Sender: FDA-Public Use
  Company Number: US-ABBOTT-10P-163-0668469-00

PATIENT
  Sex: Female
  Weight: 92.616 kg

DRUGS (4)
  1. METFORMIN HCL [Concomitant]
     Indication: PRODUCT USED FOR UNKNOWN INDICATION
  2. UNKNOWN MEDICATION [Concomitant]
     Indication: BLOOD PRESSURE
  3. NIASPAN [Suspect]
     Indication: PRODUCT USED FOR UNKNOWN INDICATION
     Dosage: AT BEDTIME
     Dates: start: 20100831
  4. UNKNOWN MEDICATION [Concomitant]
     Indication: BLOOD PARATHYROID HORMONE

REACTIONS (1)
  - FLUSHING [None]
